FAERS Safety Report 21075445 (Version 1)
Quarter: 2022Q3

REPORT INFORMATION
  Report Type: Spontaneous
  Country: CN (occurrence: CN)
  Receive Date: 20220713
  Receipt Date: 20220713
  Transmission Date: 20221027
  Serious: Yes (Death, Life-Threatening, Hospitalization, Other)
  Sender: FDA-Public Use
  Company Number: CN-PFIZER INC-PV202200013637

PATIENT
  Age: 59 Year
  Sex: Male

DRUGS (2)
  1. MEROPENEM [Suspect]
     Active Substance: MEROPENEM
     Indication: Sepsis
     Dosage: UNK
  2. TEICOPLANIN [Suspect]
     Active Substance: TEICOPLANIN
     Indication: Sepsis
     Dosage: UNK

REACTIONS (1)
  - Drug ineffective [Fatal]
